FAERS Safety Report 7152737-1 (Version None)
Quarter: 2010Q4

REPORT INFORMATION
  Report Type: 
  Country: None (occurrence: None)
  Receive Date: 20101213
  Receipt Date: 20101201
  Transmission Date: 20110411
  Serious: Yes (Hospitalization, Other)
  Sender: FDA-Public Use
  Company Number: FI-GENZYME-CAMP-1001189

PATIENT
  Age: 73 Year
  Sex: Male

DRUGS (8)
  1. CAMPATH [Suspect]
     Indication: CHRONIC LYMPHOCYTIC LEUKAEMIA
     Dosage: UNK
     Route: 065
     Dates: start: 20081001
  2. CAMPATH [Suspect]
     Dosage: 30 MG, 1X/W
     Route: 058
     Dates: start: 20100501, end: 20100809
  3. COTRIM [Concomitant]
     Indication: PRODUCT USED FOR UNKNOWN INDICATION
     Dosage: UNK
     Route: 065
  4. ALLONOL [Concomitant]
     Indication: PRODUCT USED FOR UNKNOWN INDICATION
     Dosage: 300 MG, QD
     Route: 065
  5. DIFORMIN [Concomitant]
     Indication: TYPE 2 DIABETES MELLITUS
     Dosage: 750 MG, BID
     Route: 065
  6. PROTAPHANE [Concomitant]
     Indication: TYPE 2 DIABETES MELLITUS
     Dosage: 22 IU, QD
     Route: 065
  7. PROTAPHANE [Concomitant]
     Dosage: 20 IU MORNING AND 12 IU IN EVENING
     Route: 065
  8. NOVORAPID [Concomitant]
     Indication: TYPE 2 DIABETES MELLITUS
     Dosage: UNK
     Route: 065

REACTIONS (12)
  - ANAEMIA [None]
  - ANAEMIA HAEMOLYTIC AUTOIMMUNE [None]
  - CATARACT [None]
  - HUMAN POLYOMAVIRUS INFECTION [None]
  - LEUKOPENIA [None]
  - MENINGITIS LISTERIA [None]
  - MYOCARDIAL ISCHAEMIA [None]
  - NEUTROPENIA [None]
  - NIGHT SWEATS [None]
  - ORAL HERPES [None]
  - PNEUMOCYSTIS JIROVECI PNEUMONIA [None]
  - VESTIBULAR NEURONITIS [None]
